FAERS Safety Report 15741464 (Version 1)
Quarter: 2018Q4

REPORT INFORMATION
  Report Type: Report from Study
  Country: FR (occurrence: FR)
  Receive Date: 20181219
  Receipt Date: 20181219
  Transmission Date: 20190205
  Serious: Yes (Other)
  Sender: FDA-Public Use
  Company Number: FR-JAZZ-2018-FR-013295

PATIENT

DRUGS (2)
  1. DEFITELIO [Suspect]
     Active Substance: DEFIBROTIDE SODIUM
     Indication: VENOOCCLUSIVE DISEASE
     Dosage: 27.4 MG/KG/QD
     Dates: start: 20160423, end: 20160508
  2. DEFITELIO [Suspect]
     Active Substance: DEFIBROTIDE SODIUM
     Dosage: 23.8 MG/KG, QD
     Dates: start: 20160423, end: 20160508

REACTIONS (3)
  - Sinusitis [Unknown]
  - Bronchitis viral [Unknown]
  - Pneumonia influenzal [Unknown]

NARRATIVE: CASE EVENT DATE: 20160606
